FAERS Safety Report 19849830 (Version 1)
Quarter: 2021Q3

REPORT INFORMATION
  Report Type: Spontaneous
  Country: DE (occurrence: DE)
  Receive Date: 20210918
  Receipt Date: 20210918
  Transmission Date: 20211014
  Serious: Yes (Hospitalization)
  Sender: FDA-Public Use
  Company Number: DE-ACCORD-239254

PATIENT
  Age: 63 Year
  Sex: Male
  Weight: 71 kg

DRUGS (9)
  1. RISPERIDONE. [Suspect]
     Active Substance: RISPERIDONE
     Indication: PRODUCT USED FOR UNKNOWN INDICATION
     Dosage: 0.5 MG, 1?0?1?0
  2. METAMIZOLE SODIUM [Concomitant]
     Active Substance: METAMIZOLE SODIUM
     Dosage: 30 DROPS, 1?1?1?0
  3. ORNITHINE [Concomitant]
     Active Substance: ORNITHINE
     Dosage: 3000 MG, 1?0?1?0
  4. CYANOCOBALAMIN/CYANOCOBALAMIN ZINC TANNATE/CYANOCOBALAMIN?TANNIN COMPLEX [Concomitant]
     Active Substance: CYANOCOBALAMIN
     Dosage: 2000 MG, 1?0?0?0
  5. CARVEDILOL/CARVEDILOL HYDROCHLODRIDE [Concomitant]
     Active Substance: CARVEDILOL HYDROCHLORIDE
     Dosage: 3,125 MG, SCHEME
  6. TORASEMIDE/TORASEMIDE SODIUM [Suspect]
     Active Substance: TORSEMIDE
     Indication: PRODUCT USED FOR UNKNOWN INDICATION
     Dosage: 20 MG, 1?0?0?0
  7. SPIRONOLACTONE. [Suspect]
     Active Substance: SPIRONOLACTONE
     Indication: PRODUCT USED FOR UNKNOWN INDICATION
     Dosage: 50 MG, 1?0?0?0
  8. PANTOPRAZOLE [Suspect]
     Active Substance: PANTOPRAZOLE
     Indication: PRODUCT USED FOR UNKNOWN INDICATION
     Dosage: 40 MG, 1?0?1?0
  9. LACTULOSE. [Concomitant]
     Active Substance: LACTULOSE
     Dosage: 667 G, 1?1?0?0

REACTIONS (11)
  - Condition aggravated [Unknown]
  - Oedema peripheral [Unknown]
  - Acute abdomen [Unknown]
  - Abdominal distension [Unknown]
  - Anaemia [Unknown]
  - Systemic infection [Unknown]
  - General physical health deterioration [Unknown]
  - Hyperkalaemia [Unknown]
  - Bradycardia [Unknown]
  - Hypotension [Unknown]
  - Hyponatraemia [Unknown]
